FAERS Safety Report 10226491 (Version 2)
Quarter: 2014Q2

REPORT INFORMATION
  Report Type: Spontaneous
  Country: US (occurrence: US)
  Receive Date: 20140609
  Receipt Date: 20140609
  Transmission Date: 20141212
  Serious: No
  Sender: FDA-Public Use
  Company Number: US-AMGEN INC.-KDL426508

PATIENT
  Sex: 0

DRUGS (3)
  1. PROCRIT [Suspect]
     Indication: RENAL FAILURE CHRONIC
     Dosage: 10000 U/ML 6 PACK RAR
     Route: 058
  2. PROCRIT [Suspect]
     Dosage: 10000 U/ML 6 PACK RAR
     Route: 065
  3. INSULIN [Concomitant]
     Dosage: UNK UNK, QD

REACTIONS (2)
  - Needle issue [Unknown]
  - Injection site discomfort [Unknown]
